FAERS Safety Report 6079574-3 (Version None)
Quarter: 2009Q1

REPORT INFORMATION
  Report Type: 
  Country: None (occurrence: None)
  Receive Date: 20090217
  Receipt Date: 20090209
  Transmission Date: 20090719
  Serious: Yes (Other)
  Sender: FDA-Public Use
  Company Number: US-JNJFOC-20090202502

PATIENT
  Sex: Male
  Weight: 116.58 kg

DRUGS (17)
  1. FENTANYL TRANSDERMAL SYSTEM [Suspect]
     Indication: PAIN
     Route: 062
  2. LASIX [Concomitant]
     Route: 048
  3. K-DUR [Concomitant]
     Indication: MINERAL SUPPLEMENTATION
     Route: 048
  4. KEFLEX [Concomitant]
     Indication: ANTIBIOTIC THERAPY
     Route: 048
  5. HYDROCODONE BITARTRATE [Concomitant]
     Indication: BREAKTHROUGH PAIN
     Dosage: EVERY 4 HOURS AS NEEDED
     Route: 048
  6. AMIODARONE [Concomitant]
     Indication: HEART RATE
     Route: 048
  7. ASPIRIN [Concomitant]
     Indication: CARDIAC DISORDER
     Route: 048
  8. ZETIA [Concomitant]
     Indication: BLOOD CHOLESTEROL
     Route: 048
  9. ZOCOR [Concomitant]
     Indication: BLOOD CHOLESTEROL
     Route: 048
  10. LOPRESSOR [Concomitant]
     Indication: HYPERTENSION
     Route: 048
  11. ZESTRIL [Concomitant]
     Indication: HYPERTENSION
     Route: 048
  12. COUMADIN [Concomitant]
     Indication: ANTICOAGULANT THERAPY
     Route: 048
  13. SENNA [Concomitant]
     Indication: CONSTIPATION PROPHYLAXIS
     Dosage: 8.6 MG/50 MG DAILY
     Route: 048
  14. CLARITIN [Concomitant]
     Indication: HYPERSENSITIVITY
     Route: 048
  15. ALDACTONE [Concomitant]
     Indication: HYPERTENSION
     Route: 048
  16. NOVOLOG [Concomitant]
     Indication: DIABETES MELLITUS
     Dosage: 4 UNITS THREE TIMES DAILY AS NEEDED
     Route: 050
  17. LANTUS [Concomitant]
     Indication: DIABETES MELLITUS
     Dosage: 14 UNITS NIGHTLY
     Route: 050

REACTIONS (4)
  - DEPRESSION [None]
  - HYPERCHLORHYDRIA [None]
  - WEIGHT DECREASED [None]
  - WRONG TECHNIQUE IN DRUG USAGE PROCESS [None]
